FAERS Safety Report 5384685-1 (Version None)
Quarter: 2007Q3

REPORT INFORMATION
  Report Type: 
  Country: None (occurrence: None)
  Receive Date: 20070711
  Receipt Date: 20070702
  Transmission Date: 20080115
  Serious: Yes (Death, Hospitalization)
  Sender: FDA-Public Use
  Company Number: CZ-ABBOTT-07P-217-0373446-00

PATIENT
  Age: 56 Year
  Sex: Female
  Weight: 41 kg

DRUGS (2)
  1. KALETRA [Suspect]
     Indication: HIV INFECTION CDC CATEGORY C3
     Route: 048
     Dates: start: 20070505, end: 20070620
  2. TRIZIVIR [Concomitant]
     Indication: HIV INFECTION
     Route: 048
     Dates: start: 20070601, end: 20070630

REACTIONS (12)
  - BRONCHOPNEUMONIA [None]
  - CACHEXIA [None]
  - CARDIOPULMONARY FAILURE [None]
  - COMMUNICATION DISORDER [None]
  - GENERAL PHYSICAL HEALTH DETERIORATION [None]
  - HIV INFECTION CDC CATEGORY C3 [None]
  - IRON DEFICIENCY ANAEMIA [None]
  - LEUKOPENIA [None]
  - NAUSEA [None]
  - OESOPHAGEAL CANDIDIASIS [None]
  - THROMBOCYTOPENIA [None]
  - VOMITING [None]
